FAERS Safety Report 13408576 (Version 4)
Quarter: 2022Q2

REPORT INFORMATION
  Report Type: Spontaneous
  Country: US (occurrence: US)
  Receive Date: 20170406
  Receipt Date: 20220624
  Transmission Date: 20220721
  Serious: No
  Sender: FDA-Public Use
  Company Number: US-JNJFOC-20170224944

PATIENT
  Age: 15 Year
  Sex: Male

DRUGS (5)
  1. RISPERDAL [Suspect]
     Active Substance: RISPERIDONE
     Indication: Oppositional defiant disorder
     Dosage: 0.5 MG AT 4 PM AND LATER ADDITION OF 0.5 MG IN MORNING AND AT 4 PM
     Route: 048
     Dates: start: 20020414, end: 20020619
  2. RISPERDAL [Suspect]
     Active Substance: RISPERIDONE
     Indication: Depression
     Dosage: 0.5 MG AT 4 PM AND LATER ADDITION OF 0.5 MG IN MORNING AND AT 4 PM. .
     Route: 048
     Dates: start: 20020425, end: 20020611
  3. RISPERDAL [Suspect]
     Active Substance: RISPERIDONE
     Indication: Autism spectrum disorder
     Dosage: THIS WAS CHANGED TO TOTAL DOSE OF 1 MG IN 6 PM AND NO MORNING DOSE.
     Route: 048
     Dates: start: 20020611, end: 20020618
  4. RISPERDAL [Suspect]
     Active Substance: RISPERIDONE
     Indication: Agitation
  5. RISPERDAL [Suspect]
     Active Substance: RISPERIDONE
     Indication: Irritability

REACTIONS (3)
  - Emotional distress [Unknown]
  - Tremor [Unknown]
  - Gynaecomastia [Unknown]

NARRATIVE: CASE EVENT DATE: 20020501
